FAERS Safety Report 8762901 (Version 2)
Quarter: 2012Q4

REPORT INFORMATION
  Report Type: Spontaneous
  Country: FR (occurrence: None)
  Receive Date: 20120823
  Receipt Date: 20120907
  Transmission Date: 20130627
  Serious: Yes (Hospitalization)
  Sender: FDA-Public Use
  Company Number: 1379637

PATIENT
  Age: 46 Year
  Sex: Male

DRUGS (27)
  1. VINCRISTINE SULFATE [Suspect]
     Indication: BURKITT^S LYMPHOMA STAGE IV
     Route: 042
     Dates: start: 20120520
  2. VINCRISTINE SULFATE [Suspect]
     Indication: BURKITT^S LYMPHOMA STAGE IV
     Route: 042
     Dates: start: 20120520
  3. VINCRISTINE SULFATE [Suspect]
     Indication: BURKITT^S LYMPHOMA STAGE IV
     Route: 042
     Dates: start: 20120525
  4. VINCRISTINE SULFATE [Suspect]
     Indication: BURKITT^S LYMPHOMA STAGE IV
     Route: 042
     Dates: start: 20120525
  5. MABTHERA [Suspect]
     Indication: BURKITT^S LYMPHOMA STAGE IV
     Route: 042
     Dates: start: 20120519, end: 20120519
  6. ENDOXAN [Suspect]
     Indication: BURKITT^S LYMPHOMA STAGE IV
     Route: 042
     Dates: start: 20120521, end: 20120523
  7. CORTANCYL [Suspect]
     Indication: BURKITT^S LYMPHOMA STAGE IV
     Route: 048
     Dates: start: 20120520, end: 20120524
  8. DOXORUBICIN [Suspect]
     Indication: BURKITT^S LYMPHOMA STAGE IV
     Route: 042
     Dates: start: 20120521, end: 20120521
  9. METHOTREXATE [Suspect]
     Indication: BURKITT^S LYMPHOMA STAGE IV
     Route: 042
     Dates: start: 20120520, end: 20120520
  10. METHOTREXATE [Suspect]
     Indication: BURKITT^S LYMPHOMA STAGE IV
     Route: 042
     Dates: start: 20120520, end: 20120520
  11. METHOTREXATE [Suspect]
     Indication: BURKITT^S LYMPHOMA STAGE IV
     Route: 042
     Dates: start: 20120520, end: 20120520
  12. METHOTREXATE [Suspect]
     Indication: BURKITT^S LYMPHOMA STAGE IV
     Route: 037
     Dates: start: 20120521
  13. METHOTREXATE [Suspect]
     Indication: BURKITT^S LYMPHOMA STAGE IV
     Route: 037
     Dates: start: 20120521
  14. METHOTREXATE [Suspect]
     Indication: BURKITT^S LYMPHOMA STAGE IV
     Route: 037
     Dates: start: 20120521
  15. METHOTREXATE [Suspect]
     Indication: BURKITT^S LYMPHOMA STAGE IV
     Route: 037
     Dates: start: 20120525
  16. METHOTREXATE [Suspect]
     Indication: BURKITT^S LYMPHOMA STAGE IV
     Route: 037
     Dates: start: 20120525
  17. METHOTREXATE [Suspect]
     Indication: BURKITT^S LYMPHOMA STAGE IV
     Route: 037
     Dates: start: 20120525
  18. CALCIUM LEVOFOLINATE [Suspect]
     Indication: BURKITT^S LYMPHOMA STAGE IV
     Route: 042
     Dates: start: 20120521, end: 20120525
  19. CYTARABINE [Concomitant]
  20. BACTRIM DS [Concomitant]
  21. VALACICLOVIR [Concomitant]
  22. LYRICA [Concomitant]
  23. NEXIUM [Concomitant]
  24. EMEND [Concomitant]
  25. ONDANSETRON [Concomitant]
  26. ZYLORIC [Concomitant]
  27. CALCIPARINE [Concomitant]

REACTIONS (1)
  - Renal failure acute [None]
